FAERS Safety Report 19372952 (Version 1)
Quarter: 2021Q2

REPORT INFORMATION
  Report Type: Spontaneous
  Country: US (occurrence: US)
  Receive Date: 20210604
  Receipt Date: 20210604
  Transmission Date: 20210717
  Serious: Yes (Hospitalization, Other)
  Sender: FDA-Public Use
  Company Number: None

PATIENT
  Age: 80 Year
  Sex: Female
  Weight: 98 kg

DRUGS (15)
  1. BAMLANIVIMAB. [Concomitant]
     Active Substance: BAMLANIVIMAB
     Dates: start: 20210603, end: 20210603
  2. CALCIUM + VITAMIN D [Concomitant]
     Active Substance: CALCIUM\VITAMIN D
     Dates: start: 20210604
  3. ETESEVIMAB. [Concomitant]
     Active Substance: ETESEVIMAB
     Dates: start: 20210603, end: 20210603
  4. BAMLANIVIMAB. [Suspect]
     Active Substance: BAMLANIVIMAB
     Dosage: ?          OTHER FREQUENCY:ONCE;?
     Route: 042
     Dates: start: 20210603, end: 20210603
  5. ATENOLOL. [Concomitant]
     Active Substance: ATENOLOL
     Dates: start: 20210604
  6. DEXAMETHASONE. [Concomitant]
     Active Substance: DEXAMETHASONE
     Dates: start: 20210603
  7. OXYBUTYNIN. [Concomitant]
     Active Substance: OXYBUTYNIN CHLORIDE
     Dates: start: 20210604
  8. ASPIRIN. [Concomitant]
     Active Substance: ASPIRIN
     Dates: start: 20210604
  9. BACLOFEN. [Concomitant]
     Active Substance: BACLOFEN
     Dates: start: 20210603
  10. ENOXAPARIN [Concomitant]
     Active Substance: ENOXAPARIN
     Dates: start: 20210604
  11. CALCIUM CARBONATE. [Concomitant]
     Active Substance: CALCIUM CARBONATE
     Dates: start: 20210603
  12. LEVOTHRYOXINE [Concomitant]
     Active Substance: LEVOTHYROXINE
     Dates: start: 20210604
  13. ETESEVIMAB. [Suspect]
     Active Substance: ETESEVIMAB
     Dosage: ?          OTHER FREQUENCY:ONCE;?
     Route: 042
     Dates: start: 20210603, end: 20210603
  14. ALBUTEROL. [Concomitant]
     Active Substance: ALBUTEROL
     Dates: start: 20210603
  15. ETHACRYNIC ACID. [Concomitant]
     Active Substance: ETHACRYNIC ACID
     Dates: start: 20210604

REACTIONS (7)
  - Infusion related reaction [None]
  - Pulmonary oedema [None]
  - Panic reaction [None]
  - Pulmonary congestion [None]
  - Tremor [None]
  - Chills [None]
  - Respiratory failure [None]

NARRATIVE: CASE EVENT DATE: 20210603
